FAERS Safety Report 9235759 (Version 2)
Quarter: 2013Q2

REPORT INFORMATION
  Report Type: Spontaneous
  Country: RU (occurrence: RU)
  Receive Date: 20130417
  Receipt Date: 20130419
  Transmission Date: 20140414
  Serious: Yes (Life-Threatening, Hospitalization)
  Sender: FDA-Public Use
  Company Number: RU-JNJFOC-20130404026

PATIENT
  Sex: Female
  Weight: 47 kg

DRUGS (4)
  1. INVEGA [Suspect]
     Indication: SUICIDAL IDEATION
     Route: 048
     Dates: start: 2012, end: 2013
  2. INVEGA [Suspect]
     Indication: SUICIDAL IDEATION
     Dosage: 3 PACKS OF INVEGA-6 (84 TABLETS)
     Route: 048
  3. INVEGA [Suspect]
     Indication: SCHIZOPHRENIA
     Route: 048
     Dates: start: 2012, end: 2013
  4. INVEGA [Suspect]
     Indication: SCHIZOPHRENIA
     Dosage: 3 PACKS OF INVEGA-6 (84 TABLETS)
     Route: 048

REACTIONS (4)
  - Suicide attempt [Not Recovered/Not Resolved]
  - Schizophrenia [Unknown]
  - Loss of consciousness [Unknown]
  - Intentional overdose [Not Recovered/Not Resolved]
